FAERS Safety Report 6868039-4 (Version None)
Quarter: 2010Q3

REPORT INFORMATION
  Report Type: 
  Country: None (occurrence: None)
  Receive Date: 20100722
  Receipt Date: 20080611
  Transmission Date: 20110219
  Serious: No
  Sender: FDA-Public Use
  Company Number: US-PFIZER INC-2008042198

PATIENT
  Sex: Female
  Weight: 56.25 kg

DRUGS (2)
  1. CHANTIX [Suspect]
     Indication: SMOKING CESSATION THERAPY
     Route: 048
     Dates: start: 20080401
  2. VITAMINS [Concomitant]

REACTIONS (5)
  - HOT FLUSH [None]
  - INSOMNIA [None]
  - MALAISE [None]
  - MENSTRUAL DISORDER [None]
  - NAUSEA [None]
